FAERS Safety Report 9329852 (Version 2)
Quarter: 2013Q3

REPORT INFORMATION
  Report Type: Spontaneous
  Country: US (occurrence: US)
  Receive Date: 20130604
  Receipt Date: 20130808
  Transmission Date: 20140515
  Serious: Yes (Death)
  Sender: FDA-Public Use
  Company Number: US-B.I. PHARMACEUTICALS,INC./RIDGEFIELD-2013-BI-15507BP

PATIENT
  Age: 61 Year
  Sex: Female
  Weight: 81.19 kg

DRUGS (16)
  1. SPIRIVA [Suspect]
     Indication: CHRONIC OBSTRUCTIVE PULMONARY DISEASE
     Dosage: 18 MG
     Route: 055
     Dates: start: 201006
  2. SPIRIVA [Suspect]
     Route: 055
     Dates: start: 20121107
  3. COMBIVENT [Suspect]
     Indication: CHRONIC OBSTRUCTIVE PULMONARY DISEASE
  4. ATROVENT [Suspect]
     Indication: CHRONIC OBSTRUCTIVE PULMONARY DISEASE
     Dosage: STRENGTH: 0.02 %
     Dates: start: 20111102
  5. ADVAIR [Concomitant]
  6. ALBUTEROL [Concomitant]
  7. DILTIAZEM [Concomitant]
  8. DULERA [Concomitant]
  9. EXFORGE [Concomitant]
  10. FLONASE [Concomitant]
  11. PAXIL [Concomitant]
  12. PREDNISONE [Concomitant]
  13. SINGULAIR [Concomitant]
  14. SYMBICORT [Concomitant]
  15. XANAX [Concomitant]
  16. ZOCOR [Concomitant]

REACTIONS (2)
  - Cardiac arrest [Fatal]
  - Respiratory failure [Fatal]
